FAERS Safety Report 4365492-5 (Version None)
Quarter: 2004Q2

REPORT INFORMATION
  Report Type: 
  Country: None (occurrence: None)
  Receive Date: 20040526
  Receipt Date: 20030808
  Transmission Date: 20050107
  Serious: Yes (Death, Hospitalization)
  Sender: FDA-Public Use
  Company Number: US-MERCK-0308USA01240

PATIENT
  Age: 92 Year
  Sex: Male

DRUGS (16)
  1. ACETAMINOPHEN AND HYDROCODONE BITARTRATE [Concomitant]
     Route: 065
  2. ASPIRIN [Concomitant]
     Route: 048
  3. CLAVULANATE POTASSIUM AND TICARCILLIN DISODIUM [Concomitant]
     Indication: URINARY TRACT INFECTION
     Route: 042
  4. COLACE [Concomitant]
     Route: 065
  5. PEPCID [Suspect]
     Indication: PROPHYLAXIS
     Route: 048
     Dates: start: 20030501, end: 20030501
  6. FENTANYL [Concomitant]
     Route: 042
  7. FUROSEMIDE [Concomitant]
     Route: 065
  8. GLYBURIDE [Concomitant]
     Route: 065
  9. HEPARIN [Concomitant]
     Route: 058
  10. INSULIN [Concomitant]
     Indication: HYPERGLYCAEMIA
     Route: 041
  11. LISINOPRIL [Concomitant]
     Route: 065
  12. METOPROLOL [Concomitant]
     Route: 048
  13. MIDAZOLAM [Concomitant]
     Route: 042
  14. PHYTONADIONE [Concomitant]
     Indication: INTERNATIONAL NORMALISED RATIO INCREASED
     Route: 058
  15. VANCOMYCIN [Concomitant]
     Route: 042
  16. ZOLPIDEM TARTRATE [Concomitant]
     Route: 065

REACTIONS (7)
  - ACUTE MYOCARDIAL INFARCTION [None]
  - ELECTROCARDIOGRAM QT PROLONGED [None]
  - INTERNATIONAL NORMALISED RATIO INCREASED [None]
  - MULTI-ORGAN FAILURE [None]
  - RENAL FAILURE [None]
  - SEPSIS [None]
  - TORSADE DE POINTES [None]
